FAERS Safety Report 6537302-9 (Version None)
Quarter: 2010Q1

REPORT INFORMATION
  Report Type: 
  Country: None (occurrence: None)
  Receive Date: 20100110
  Receipt Date: 20091229
  Transmission Date: 20100710
  Serious: Yes (Hospitalization)
  Sender: FDA-Public Use
  Company Number: TW-JNJFOC-200805 05738

PATIENT
  Age: 67 Year
  Sex: Female
  Weight: 65 kg

DRUGS (21)
  1. DECITABINE (DECITABINE)  LYOPHILIZED POWDER [Suspect]
     Indication: ACUTE MYELOID LEUKAEMIA
     Dosage: SEE IMAGE, INTRAVENOUS
     Route: 042
     Dates: start: 20080312, end: 20080316
  2. DECITABINE (DECITABINE)  LYOPHILIZED POWDER [Suspect]
     Indication: ACUTE MYELOID LEUKAEMIA
     Dosage: SEE IMAGE, INTRAVENOUS
     Route: 042
     Dates: start: 20080409, end: 20080413
  3. DECITABINE (DECITABINE)  LYOPHILIZED POWDER [Suspect]
     Indication: ACUTE MYELOID LEUKAEMIA
     Dosage: SEE IMAGE, INTRAVENOUS
     Route: 042
     Dates: start: 20080507, end: 20080511
  4. DECITABINE (DECITABINE)  LYOPHILIZED POWDER [Suspect]
     Indication: ACUTE MYELOID LEUKAEMIA
     Dosage: SEE IMAGE, INTRAVENOUS
     Route: 042
     Dates: start: 20080604, end: 20080609
  5. SENNA (SENNA ALEXANDRIA) [Concomitant]
  6. NETOCLOPRAMIDE (METOCLOPRAMIDE) [Concomitant]
  7. DIPHENHYDRAMINE HCL [Concomitant]
  8. BETAMETHASONE [Concomitant]
  9. GLYCYRRHIZA (GLYCYRRHIZA GLABRA EXTRACT) [Concomitant]
  10. MAGNESIUM OXIDE (MAGNESIUM OXIDE) [Concomitant]
  11. FLUNARIZINE (FLUNARIZINE) [Concomitant]
  12. MOSAPRIDE CITRATE DIHYDRATE (MOSAPRIDE CITRATE) [Concomitant]
  13. PANTOPRAZOLE SODIUM [Concomitant]
  14. VITAMIN B-COMPLEX (B-KOMPLEX) [Concomitant]
  15. ZOLPIDEM TARTRATE [Concomitant]
  16. CEPHALEXIN [Concomitant]
  17. BISCODYL (BISACODYL) [Concomitant]
  18. HYDREA [Concomitant]
  19. FEXOFENADINE HCL [Concomitant]
  20. SODIUM FUSIDATE (FUSIDATE SODIUM) [Concomitant]
  21. CHLORHEXIDINE GLUCONATE (GHLOREXIDINE GLUCONATE) [Concomitant]

REACTIONS (13)
  - ACUTE MYELOID LEUKAEMIA [None]
  - CUTANEOUS VASCULITIS [None]
  - EOSINOPHIL COUNT INCREASED [None]
  - GENERAL PHYSICAL HEALTH DETERIORATION [None]
  - HAEMATOCRIT DECREASED [None]
  - HAEMOGLOBIN DECREASED [None]
  - LYMPHOCYTE COUNT DECREASED [None]
  - MALIGNANT NEOPLASM PROGRESSION [None]
  - MONOCYTE COUNT DECREASED [None]
  - NEUTROPENIA [None]
  - PHLEBITIS [None]
  - PLATELET COUNT DECREASED [None]
  - THROMBOSIS [None]
